FAERS Safety Report 11253141 (Version 3)
Quarter: 2015Q4

REPORT INFORMATION
  Report Type: Spontaneous
  Country: US (occurrence: US)
  Receive Date: 20150709
  Receipt Date: 20151022
  Transmission Date: 20160304
  Serious: Yes (Death, Hospitalization)
  Sender: FDA-Public Use
  Company Number: US-ROCHE-1603058

PATIENT
  Sex: Female
  Weight: 68.55 kg

DRUGS (2)
  1. PIRFENIDONE [Suspect]
     Active Substance: PIRFENIDONE
     Dosage: TOTAL- 1602 MG DAILY; 2 CAPSULES THREE TIMES A DAY
     Route: 048
     Dates: start: 20150709
  2. PIRFENIDONE [Suspect]
     Active Substance: PIRFENIDONE
     Indication: IDIOPATHIC PULMONARY FIBROSIS
     Dosage: 2403 MG DAILY, 3 CAPS PO TID
     Route: 048

REACTIONS (5)
  - Death [Fatal]
  - Lung infection [Unknown]
  - Decreased appetite [Unknown]
  - Bronchitis [Unknown]
  - Nausea [Unknown]
